FAERS Safety Report 8715437 (Version 2)
Quarter: 2012Q4

REPORT INFORMATION
  Report Type: Report from Study
  Country: US (occurrence: US)
  Receive Date: 20120809
  Receipt Date: 20120907
  Transmission Date: 20130627
  Serious: Yes (Hospitalization)
  Sender: FDA-Public Use
  Company Number: US-ROCHE-1096061

PATIENT
  Age: 58 Year
  Sex: Female
  Weight: 74 kg

DRUGS (10)
  1. AVASTIN [Suspect]
     Indication: BREAST CANCER
     Route: 042
     Dates: start: 20111108
  2. HYDROCHLOROTHIAZIDE [Concomitant]
     Indication: BLOOD PRESSURE
     Route: 065
  3. ADVAIR [Concomitant]
     Indication: ASTHMA
     Route: 065
  4. ALBUTEROL [Concomitant]
     Indication: ASTHMA
     Route: 065
  5. LISINOPRIL [Concomitant]
     Indication: HYPERTENSION
     Route: 065
  6. AMBIEN [Concomitant]
     Indication: INSOMNIA
     Route: 065
  7. AMLODIPINE [Concomitant]
     Indication: HYPERTENSION
     Route: 065
  8. ATIVAN [Concomitant]
     Indication: ANXIETY
     Route: 065
  9. SERTRALINE [Concomitant]
     Indication: DEPRESSION
     Route: 065
  10. AROMASIN [Concomitant]
     Indication: BREAST CANCER
     Route: 065

REACTIONS (4)
  - Dizziness [Recovered/Resolved]
  - Headache [Recovered/Resolved]
  - Chest discomfort [Recovered/Resolved]
  - Paraesthesia [Recovered/Resolved]
